FAERS Safety Report 4560003-3 (Version None)
Quarter: 2005Q1

REPORT INFORMATION
  Report Type: 
  Country: None (occurrence: None)
  Receive Date: 20050120
  Receipt Date: 20050120
  Transmission Date: 20050727
  Serious: Yes (Hospitalization)
  Sender: FDA-Public Use
  Company Number: None

PATIENT

DRUGS (2)
  1. SPIRONOLACTONE [Suspect]
     Dosage: 200 MG PO QD
     Route: 048
  2. LISINOPRIL [Suspect]
     Dosage: 10 MG PO QD
     Route: 048

REACTIONS (2)
  - HYPERKALAEMIA [None]
  - HYPONATRAEMIA [None]
